FAERS Safety Report 6604975-1 (Version None)
Quarter: 2010Q1

REPORT INFORMATION
  Report Type: 
  Country: None (occurrence: None)
  Receive Date: 20100219
  Receipt Date: 20100210
  Transmission Date: 20100710
  Serious: Yes (Hospitalization)
  Sender: FDA-Public Use
  Company Number: 230024J09BRA

PATIENT
  Age: 35 Year
  Sex: Female

DRUGS (8)
  1. REBIF [Suspect]
     Indication: RELAPSING-REMITTING MULTIPLE SCLEROSIS
     Dosage: 44 MCG, 3 IN 1 WEEKS
     Dates: start: 20060220, end: 20091101
  2. IMIPRAMINE [Concomitant]
  3. GABAPENTINE (GABAPENTIN) [Concomitant]
  4. DORFLEX (DORFLEX) [Concomitant]
  5. OMEPRAZOLE [Concomitant]
  6. MACRODANTINE (NITROFURANTOIN) [Concomitant]
  7. OXYBUTININE (OXYBUTYNIN) [Concomitant]
  8. CENTRUM (CENTRUM) [Concomitant]

REACTIONS (6)
  - DIPLOPIA [None]
  - DIZZINESS [None]
  - INJECTION SITE ERYTHEMA [None]
  - INJECTION SITE PAIN [None]
  - MULTIPLE SCLEROSIS RELAPSE [None]
  - VISION BLURRED [None]
